FAERS Safety Report 14984356 (Version 4)
Quarter: 2019Q3

REPORT INFORMATION
  Report Type: Report from Study
  Country: FR (occurrence: FR)
  Receive Date: 20180607
  Receipt Date: 20190807
  Transmission Date: 20191004
  Serious: Yes (Life-Threatening, Hospitalization, Other)
  Sender: FDA-Public Use
  Company Number: FR-JAZZ-2018-FR-006078

PATIENT

DRUGS (9)
  1. SEVREDOL [Suspect]
     Active Substance: MORPHINE
     Indication: PRODUCT USED FOR UNKNOWN INDICATION
  2. MYCOPHENOLATE MOFETIL. [Concomitant]
     Active Substance: MYCOPHENOLATE MOFETIL
     Indication: PROPHYLAXIS AGAINST GRAFT VERSUS HOST DISEASE
     Dosage: 30 MG/KG, QD
  3. HEPARIN [Concomitant]
     Active Substance: HEPARIN SODIUM
     Indication: PROPHYLAXIS
     Dosage: 1 MG/KG, QD
  4. URSOLVAN [Suspect]
     Active Substance: URSODIOL
     Indication: VENOOCCLUSIVE LIVER DISEASE
     Dosage: 15 MG/KG, UNK
  5. CICLOSPORIN [Concomitant]
     Active Substance: CYCLOSPORINE
     Indication: PROPHYLAXIS AGAINST GRAFT VERSUS HOST DISEASE
     Dosage: 3 MG/KG, QD
  6. THIOTEPA. [Suspect]
     Active Substance: THIOTEPA
     Indication: BONE MARROW CONDITIONING REGIMEN
  7. DEFITELIO [Suspect]
     Active Substance: DEFIBROTIDE SODIUM
     Indication: VENOOCCLUSIVE LIVER DISEASE
     Dosage: 24 MG/KG, QD
     Route: 042
     Dates: start: 20160409, end: 201604
  8. LYRICA [Suspect]
     Active Substance: PREGABALIN
     Indication: PRODUCT USED FOR UNKNOWN INDICATION
  9. ZELITREX [Concomitant]
     Active Substance: VALACYCLOVIR HYDROCHLORIDE
     Indication: INFECTION PROPHYLAXIS
     Dosage: 500 MG, BID

REACTIONS (41)
  - Cytomegalovirus infection [Recovered/Resolved]
  - Parotitis [Unknown]
  - Oedema peripheral [Unknown]
  - Pneumonia [Unknown]
  - Epstein-Barr virus infection [Recovered/Resolved]
  - Muscle atrophy [Unknown]
  - Dysphagia [Unknown]
  - Haemorrhage [Unknown]
  - Atelectasis [Unknown]
  - Toxicity to various agents [Unknown]
  - Urinary tract infection [Unknown]
  - Haemophagocytic lymphohistiocytosis [Unknown]
  - Fungal infection [Unknown]
  - Multiple organ dysfunction syndrome [Recovered/Resolved]
  - Hypotension [Recovered/Resolved]
  - Pseudomonas infection [Unknown]
  - Acute pulmonary oedema [Unknown]
  - Diarrhoea haemorrhagic [Unknown]
  - Pleural effusion [Unknown]
  - Cardiac failure [Unknown]
  - Dysgeusia [Unknown]
  - Immunosuppression [Unknown]
  - Orchitis [Recovering/Resolving]
  - Graft versus host disease in liver [Unknown]
  - Pseudomonal sepsis [Recovered/Resolved]
  - Dysaesthesia [Unknown]
  - Tremor [Unknown]
  - Hallucination [Unknown]
  - Oxygen saturation decreased [Recovered/Resolved]
  - Neuropathy peripheral [Unknown]
  - Underdose [Unknown]
  - Citrobacter infection [Unknown]
  - Decubitus ulcer [Unknown]
  - Dyskinesia [Unknown]
  - Peripheral coldness [Unknown]
  - Graft versus host disease in skin [Unknown]
  - Atrial fibrillation [Recovered/Resolved]
  - Malnutrition [Unknown]
  - Interstitial lung disease [Unknown]
  - Graft versus host disease in gastrointestinal tract [Unknown]
  - Weight fluctuation [Unknown]

NARRATIVE: CASE EVENT DATE: 2016
